FAERS Safety Report 6291218-4 (Version None)
Quarter: 2009Q3

REPORT INFORMATION
  Report Type: 
  Country: None (occurrence: None)
  Receive Date: 20090730
  Receipt Date: 20090722
  Transmission Date: 20100115
  Serious: Yes (Death, Life-Threatening)
  Sender: FDA-Public Use
  Company Number: US-JNJFOC-20090608117

PATIENT
  Sex: Female
  Weight: 66.23 kg

DRUGS (2)
  1. REMICADE [Suspect]
     Indication: RHEUMATOID ARTHRITIS
     Route: 042
  2. PREDNISONE [Concomitant]
     Dosage: GREATER THAN 6 MONTHS

REACTIONS (2)
  - CONVULSION [None]
  - UROSEPSIS [None]
